FAERS Safety Report 11335179 (Version 1)
Quarter: 2015Q3

REPORT INFORMATION
  Report Type: Report from Study
  Country: GB (occurrence: GB)
  Receive Date: 20150804
  Receipt Date: 20150804
  Transmission Date: 20151125
  Serious: Yes (Other)
  Sender: FDA-Public Use
  Company Number: GB-ROCHE-1615822

PATIENT
  Sex: Male

DRUGS (2)
  1. ESBRIET [Suspect]
     Active Substance: PIRFENIDONE
     Indication: IDIOPATHIC PULMONARY FIBROSIS
     Route: 048
  2. CARBOCISTEINE [Suspect]
     Active Substance: CARBOCYSTEINE
     Indication: SPUTUM ABNORMAL
     Route: 065
     Dates: start: 20150727

REACTIONS (7)
  - Dyspnoea [Unknown]
  - Dyspepsia [Unknown]
  - Cough [Unknown]
  - Pulmonary hypertension [Unknown]
  - Hypertension [Unknown]
  - Idiopathic pulmonary fibrosis [Unknown]
  - Sputum abnormal [Unknown]
